FAERS Safety Report 11912416 (Version 2)
Quarter: 2016Q3

REPORT INFORMATION
  Report Type: Spontaneous
  Country: FR (occurrence: FR)
  Receive Date: 20160113
  Receipt Date: 20160704
  Transmission Date: 20161109
  Serious: Yes (Death, Life-Threatening, Hospitalization, Other)
  Sender: FDA-Public Use
  Company Number: FR-BRISTOL-MYERS SQUIBB COMPANY-BMS-2016-000665

PATIENT
  Age: 78 Year
  Sex: Female
  Weight: 54 kg

DRUGS (1)
  1. OPDIVO [Suspect]
     Active Substance: NIVOLUMAB
     Indication: LUNG NEOPLASM MALIGNANT
     Dosage: 3 MG, UNK
     Route: 042
     Dates: start: 20151014, end: 20151224

REACTIONS (6)
  - Acute kidney injury [Fatal]
  - Electrocardiogram QT prolonged [Unknown]
  - Chronic obstructive pulmonary disease [Unknown]
  - Hepatitis [Fatal]
  - General physical health deterioration [Unknown]
  - Hypocalcaemia [Unknown]

NARRATIVE: CASE EVENT DATE: 20151226
